FAERS Safety Report 20756982 (Version 1)
Quarter: 2022Q2

REPORT INFORMATION
  Report Type: Spontaneous
  Country: US (occurrence: US)
  Receive Date: 20220427
  Receipt Date: 20220427
  Transmission Date: 20220721
  Serious: No
  Sender: FDA-Public Use
  Company Number: US-PFIZER INC-202101178887

PATIENT
  Age: 68 Year
  Sex: Female

DRUGS (2)
  1. LIOTHYRONINE SODIUM [Suspect]
     Active Substance: LIOTHYRONINE SODIUM
     Dosage: ONE TABLET ONCE DAILY
     Route: 048
     Dates: start: 20210519
  2. LIOTHYRONINE SODIUM [Suspect]
     Active Substance: LIOTHYRONINE SODIUM
     Dosage: TWO TABLETS ONCE DAILY
     Route: 048

REACTIONS (7)
  - Fatigue [Recovering/Resolving]
  - Pain [Recovering/Resolving]
  - Depression [Recovered/Resolved]
  - Aphasia [Recovered/Resolved]
  - Malaise [Recovered/Resolved]
  - Insomnia [Recovered/Resolved]
  - Muscular weakness [Recovered/Resolved]
